FAERS Safety Report 7598083-3 (Version None)
Quarter: 2011Q3

REPORT INFORMATION
  Report Type: 
  Country: None (occurrence: None)
  Receive Date: 20110708
  Receipt Date: 20110704
  Transmission Date: 20111222
  Serious: Yes (Hospitalization)
  Sender: FDA-Public Use
  Company Number: TR-ABBOTT-11P-161-0835960-00

PATIENT
  Sex: Female
  Weight: 40 kg

DRUGS (2)
  1. INH [Concomitant]
     Indication: PRODUCT USED FOR UNKNOWN INDICATION
     Route: 065
  2. HUMIRA [Suspect]
     Indication: CROHN'S DISEASE
     Dates: start: 20110527

REACTIONS (2)
  - DIARRHOEA [None]
  - WEIGHT DECREASED [None]
